FAERS Safety Report 7455274-X (Version None)
Quarter: 2011Q2

REPORT INFORMATION
  Report Type: 
  Country: None (occurrence: None)
  Receive Date: 20110503
  Receipt Date: 20110429
  Transmission Date: 20111010
  Serious: Yes (Other)
  Sender: FDA-Public Use
  Company Number: US-SANOFI-AVENTIS-2011SA012314

PATIENT
  Age: 65 Year
  Sex: Female
  Weight: 109.54 kg

DRUGS (4)
  1. MULTAQ [Suspect]
     Indication: ATRIAL FIBRILLATION
     Route: 048
     Dates: start: 20100905
  2. PRAVASTATIN [Concomitant]
     Indication: THROMBOSIS PROPHYLAXIS
     Dates: start: 20050101
  3. WARFARIN [Concomitant]
     Indication: THROMBOSIS PROPHYLAXIS
     Dosage: VARYING DOSAGES BETWEEN 2.5 AND 5MG
     Dates: start: 20050101
  4. HYDROCHLOROTHIAZIDE [Concomitant]
     Dates: start: 20050101

REACTIONS (3)
  - NAUSEA [None]
  - ATRIAL FIBRILLATION [None]
  - MALAISE [None]
